FAERS Safety Report 9250387 (Version 1)
Quarter: 2013Q2

REPORT INFORMATION
  Report Type: Spontaneous
  Country: US (occurrence: US)
  Receive Date: 20130424
  Receipt Date: 20130424
  Transmission Date: 20140414
  Serious: No
  Sender: FDA-Public Use
  Company Number: US-009507513-1304USA011934

PATIENT
  Age: 85 Year
  Sex: Female

DRUGS (5)
  1. COSOPT PF [Suspect]
     Indication: GLAUCOMA
     Dosage: ONE DROP IN EACH EYE 3X A DAY
     Route: 047
     Dates: start: 20130417
  2. VYTORIN [Concomitant]
  3. TRANDOLAPRIL [Concomitant]
  4. ACTEMRA [Concomitant]
  5. ECOTRIN [Concomitant]

REACTIONS (1)
  - Eye irritation [Not Recovered/Not Resolved]
